FAERS Safety Report 9353148 (Version 1)
Quarter: 2013Q2

REPORT INFORMATION
  Report Type: Spontaneous
  Country: US (occurrence: None)
  Receive Date: 20130617
  Receipt Date: 20130617
  Transmission Date: 20140414
  Serious: Yes (Other)
  Sender: FDA-Public Use
  Company Number: None

PATIENT
  Age: 42 None
  Sex: Female

DRUGS (3)
  1. ZOLPIDEM [Suspect]
     Indication: BRAIN OPERATION
     Dosage: 1 @ BEDTIME MOUTH W/H20
     Route: 048
     Dates: end: 20130613
  2. ADVIL [Concomitant]
  3. ZOLPIDEM [Concomitant]

REACTIONS (9)
  - Dizziness [None]
  - Muscular weakness [None]
  - Hypoaesthesia [None]
  - Blepharospasm [None]
  - Visual acuity reduced [None]
  - Anxiety [None]
  - General physical health deterioration [None]
  - Panic attack [None]
  - Migraine [None]
